FAERS Safety Report 10260452 (Version 6)
Quarter: 2014Q4

REPORT INFORMATION
  Report Type: Spontaneous
  Country: US (occurrence: US)
  Receive Date: 20140625
  Receipt Date: 20141106
  Transmission Date: 20150528
  Serious: Yes (Congenital Anomaly)
  Sender: FDA-Public Use
  Company Number: US-ELI_LILLY_AND_COMPANY-US201406007687

PATIENT
  Age: 0 Day
  Sex: Female

DRUGS (2)
  1. PROZAC [Suspect]
     Active Substance: FLUOXETINE HYDROCHLORIDE
     Indication: PRODUCT USED FOR UNKNOWN INDICATION
     Dosage: 10 MG, UNKNOWN
     Route: 064
     Dates: start: 20041005
  2. PROZAC [Suspect]
     Active Substance: FLUOXETINE HYDROCHLORIDE
     Indication: PRODUCT USED FOR UNKNOWN INDICATION
     Dosage: 10 MG, UNKNOWN
     Route: 064
     Dates: start: 20041005

REACTIONS (8)
  - Foetal exposure during pregnancy [Recovered/Resolved]
  - Right ventricular hypertrophy [Unknown]
  - Patent ductus arteriosus [Unknown]
  - Atrial septal defect [Unknown]
  - Meconium in amniotic fluid [Unknown]
  - Cardiac aneurysm [Unknown]
  - Cardiac murmur [Not Recovered/Not Resolved]
  - Pulmonary valve stenosis congenital [Unknown]

NARRATIVE: CASE EVENT DATE: 20051116
